FAERS Safety Report 6756686-X (Version None)
Quarter: 2010Q2

REPORT INFORMATION
  Report Type: 
  Country: None (occurrence: None)
  Receive Date: 20100604
  Receipt Date: 20100524
  Transmission Date: 20101027
  Serious: Yes (Death)
  Sender: FDA-Public Use
  Company Number: DE-WATSON-2010-07121

PATIENT
  Age: 57 Year
  Sex: Male

DRUGS (1)
  1. HEPARIN SODIUM [Suspect]
     Indication: ANTICOAGULANT THERAPY
     Dosage: 15000 U,
     Route: 042

REACTIONS (3)
  - MULTI-ORGAN FAILURE [None]
  - PULMONARY EMBOLISM [None]
  - WHITE CLOT SYNDROME [None]
